FAERS Safety Report 21009242 (Version 1)
Quarter: 2022Q2

REPORT INFORMATION
  Report Type: Spontaneous
  Country: US (occurrence: None)
  Receive Date: 20220625
  Receipt Date: 20220625
  Transmission Date: 20220720
  Serious: Yes (Hospitalization)
  Sender: FDA-Public Use
  Company Number: None

PATIENT
  Age: 38 Year
  Sex: Female
  Weight: 54 kg

DRUGS (6)
  1. .DELTA.8-TETRAHYDROCANNABINOL\HERBALS [Suspect]
     Active Substance: .DELTA.8-TETRAHYDROCANNABINOL\HERBALS
     Indication: Anxiety
     Dosage: OTHER QUANTITY : .5 GUMMIE;?OTHER FREQUENCY : ONCE ONLY;?
     Route: 048
     Dates: start: 20220624, end: 20220624
  2. PROZAC [Concomitant]
     Active Substance: FLUOXETINE HYDROCHLORIDE
  3. VIVITROL [Concomitant]
     Active Substance: NALTREXONE
  4. VITAMINS [Concomitant]
     Active Substance: VITAMINS
  5. HERBALS\SPIRULINA [Concomitant]
     Active Substance: HERBALS\SPIRULINA
  6. PROBIOTICS NOS [Concomitant]
     Active Substance: PROBIOTICS NOS

REACTIONS (11)
  - Dizziness [None]
  - Confusional state [None]
  - Speech disorder [None]
  - Dysarthria [None]
  - Tremor [None]
  - Dyspnoea [None]
  - Dizziness [None]
  - Anxiety [None]
  - Mental status changes [None]
  - Panic reaction [None]
  - Blood potassium decreased [None]

NARRATIVE: CASE EVENT DATE: 20220624
